FAERS Safety Report 5404283-0 (Version None)
Quarter: 2007Q3

REPORT INFORMATION
  Report Type: 
  Country: None (occurrence: None)
  Receive Date: 20070802
  Receipt Date: 20070801
  Transmission Date: 20080115
  Serious: Yes (Other)
  Sender: FDA-Public Use
  Company Number: US-ASTRAZENECA-2007UW00815

PATIENT
  Age: 70 Year
  Sex: Female

DRUGS (2)
  1. NOLVADEX [Suspect]
     Route: 048
     Dates: start: 20030101
  2. PROTONIX [Suspect]
     Route: 048

REACTIONS (1)
  - HEPATIC STEATOSIS [None]
